FAERS Safety Report 15344392 (Version 1)
Quarter: 2018Q3

REPORT INFORMATION
  Report Type: Spontaneous
  Country: CA (occurrence: CA)
  Receive Date: 20180903
  Receipt Date: 20180903
  Transmission Date: 20181010
  Serious: Yes (Other)
  Sender: FDA-Public Use
  Company Number: CA-PFIZER INC-2018330494

PATIENT
  Age: 64 Year
  Sex: Female

DRUGS (1)
  1. METHOTREXATE SODIUM. [Suspect]
     Active Substance: METHOTREXATE SODIUM
     Dosage: UNK
     Route: 065

REACTIONS (6)
  - Nausea [Unknown]
  - Drug ineffective [Unknown]
  - Skin infection [Unknown]
  - Pyoderma gangrenosum [Unknown]
  - Sarcoidosis [Unknown]
  - Drug intolerance [Unknown]
